FAERS Safety Report 8461510-3 (Version None)
Quarter: 2012Q2

REPORT INFORMATION
  Report Type: 
  Country: None (occurrence: None)
  Receive Date: 20120625
  Receipt Date: 20120614
  Transmission Date: 20120825
  Serious: Yes (Death)
  Sender: FDA-Public Use
  Company Number: BR-MILLENNIUM PHARMACEUTICALS, INC.-2012-04305

PATIENT

DRUGS (3)
  1. DEXAMETHASONE [Concomitant]
  2. VELCADE [Suspect]
     Indication: MULTIPLE MYELOMA
     Route: 065
  3. CYCLOPHOSPHAMIDE [Concomitant]

REACTIONS (1)
  - BRAIN OEDEMA [None]
